FAERS Safety Report 10901503 (Version 1)
Quarter: 2015Q1

REPORT INFORMATION
  Report Type: Spontaneous
  Country: US (occurrence: None)
  Receive Date: 20150303
  Receipt Date: 20150303
  Transmission Date: 20150721
  Serious: Yes (Disabling)
  Sender: FDA-Public Use
  Company Number: None

PATIENT
  Age: 65 Year
  Sex: Female
  Weight: 90.72 kg

DRUGS (11)
  1. PROZAC [Concomitant]
     Active Substance: FLUOXETINE HYDROCHLORIDE
  2. CLORAZEPAM [Concomitant]
  3. PHENTERMINE [Concomitant]
     Active Substance: PHENTERMINE
  4. FOSAMAX [Concomitant]
     Active Substance: ALENDRONATE SODIUM
  5. TRAMADOL [Concomitant]
     Active Substance: TRAMADOL
  6. FOLIC ACID. [Concomitant]
     Active Substance: FOLIC ACID
  7. HUMIRA [Suspect]
     Active Substance: ADALIMUMAB
     Indication: RHEUMATOID ARTHRITIS
     Dosage: GIVEN INTO/UNDER THE SKIN
     Route: 058
     Dates: start: 20140803, end: 20150301
  8. HUMIRA [Concomitant]
     Active Substance: ADALIMUMAB
  9. LEVOTHYROXINE [Concomitant]
     Active Substance: LEVOTHYROXINE
  10. PREDNISONE. [Concomitant]
     Active Substance: PREDNISONE
  11. VITAMIN D [Concomitant]
     Active Substance: CHOLECALCIFEROL

REACTIONS (2)
  - No therapeutic response [None]
  - Urinary tract infection [None]

NARRATIVE: CASE EVENT DATE: 20150222
